FAERS Safety Report 4677538-5 (Version None)
Quarter: 2005Q2

REPORT INFORMATION
  Report Type: 
  Country: None (occurrence: None)
  Receive Date: 20050527
  Receipt Date: 20050527
  Transmission Date: 20051028
  Serious: No
  Sender: FDA-Public Use
  Company Number: None

PATIENT
  Sex: Male

DRUGS (8)
  1. FLOMAX [Suspect]
  2. PROTONIX [Concomitant]
  3. ZANTAC [Concomitant]
  4. NORVASC [Concomitant]
  5. IMDUR [Concomitant]
  6. ASPIRIN [Concomitant]
  7. VITAMIN E [Concomitant]
  8. ASCORBIC ACID [Concomitant]

REACTIONS (4)
  - CORNEAL OEDEMA [None]
  - IRIS DISORDER [None]
  - MIOSIS [None]
  - PROCEDURAL COMPLICATION [None]
